FAERS Safety Report 6866497-2 (Version None)
Quarter: 2010Q3

REPORT INFORMATION
  Report Type: 
  Country: None (occurrence: None)
  Receive Date: 20100722
  Receipt Date: 20100713
  Transmission Date: 20110219
  Serious: Yes (Hospitalization, Other)
  Sender: FDA-Public Use
  Company Number: PHHY2010BR46183

PATIENT
  Sex: Female

DRUGS (4)
  1. FORASEQ [Suspect]
     Indication: ASTHMA
     Dosage: UNK
     Dates: start: 20060101
  2. CIPRO [Concomitant]
     Dosage: 1 DF, Q12H
     Route: 048
  3. BROMAZEPAM [Concomitant]
     Indication: ANXIETY
     Dosage: 1 DF, PER DAY
     Route: 048
  4. LOSARTAN POTASSIUM [Concomitant]
     Indication: HYPERTENSION
     Dosage: 1 DF, PER DAY
     Route: 048

REACTIONS (5)
  - BLADDER CATHETERISATION [None]
  - HYSTERECTOMY [None]
  - MENORRHAGIA [None]
  - SALPINGECTOMY [None]
  - URETERITIS [None]
